APPROVED DRUG PRODUCT: DARVOCET-N 50
Active Ingredient: ACETAMINOPHEN; PROPOXYPHENE NAPSYLATE
Strength: 325MG;50MG
Dosage Form/Route: TABLET;ORAL
Application: N017122 | Product #001
Applicant: XANODYNE PHARMACEUTICS INC
Approved: Approved Prior to Jan 1, 1982 | RLD: No | RS: No | Type: DISCN